FAERS Safety Report 8531389-X (Version None)
Quarter: 2012Q3

REPORT INFORMATION
  Report Type: 
  Country: None (occurrence: None)
  Receive Date: 20120723
  Receipt Date: 20120713
  Transmission Date: 20120928
  Serious: Yes (Other)
  Sender: FDA-Public Use
  Company Number: US-ASTRAZENECA-2012SE48618

PATIENT
  Age: 62 Year
  Sex: Male
  Weight: 98.4 kg

DRUGS (5)
  1. BRILINTA [Suspect]
     Indication: MYOCARDIAL INFARCTION
     Route: 048
  2. ATORVASTATIN [Concomitant]
  3. LISINOPRIL [Suspect]
     Route: 048
  4. ASPIRIN [Concomitant]
  5. METOPROLOL TARTRATE [Concomitant]

REACTIONS (2)
  - MYOCARDIAL INFARCTION [None]
  - SUFFOCATION FEELING [None]
